FAERS Safety Report 9473560 (Version 2)
Quarter: 2013Q4

REPORT INFORMATION
  Report Type: Spontaneous
  Country: US (occurrence: US)
  Receive Date: 20130823
  Receipt Date: 20131111
  Transmission Date: 20140711
  Serious: Yes (Other)
  Sender: FDA-Public Use
  Company Number: US-BAYER-2013-101714

PATIENT
  Age: 47 Year
  Sex: Female
  Weight: 61.22 kg

DRUGS (10)
  1. YASMIN [Suspect]
     Dosage: UNK
     Route: 048
     Dates: start: 2008, end: 200908
  2. ALBUTEROL [Concomitant]
     Indication: ASTHMA
     Dosage: UNK
     Dates: start: 2004
  3. ASACOL [Concomitant]
     Indication: CROHN^S DISEASE
     Dosage: 3600 MG, QD
     Route: 048
     Dates: start: 200803, end: 2012
  4. DIFLUCAN [Concomitant]
     Indication: FUNGAL INFECTION
     Dosage: 150 MG, UNK
     Route: 048
     Dates: start: 20090517
  5. NYSTATIN [Concomitant]
     Indication: FUNGAL INFECTION
  6. METROGEL [Concomitant]
     Indication: BACTERIAL VAGINOSIS
  7. FLAGYL [Concomitant]
     Indication: BACTERIAL VAGINOSIS
  8. VANCOMYCIN [Concomitant]
     Indication: CANDIDA INFECTION
  9. IBUPROFEN [Concomitant]
  10. FLUCONAZOLE [Concomitant]

REACTIONS (4)
  - Thrombophlebitis superficial [None]
  - Deep vein thrombosis [Recovered/Resolved]
  - Deep vein thrombosis [None]
  - Scar [None]
